FAERS Safety Report 6127315-3 (Version None)
Quarter: 2009Q1

REPORT INFORMATION
  Report Type: 
  Country: None (occurrence: None)
  Receive Date: 20090319
  Receipt Date: 20090312
  Transmission Date: 20090719
  Serious: Yes (Other)
  Sender: FDA-Public Use
  Company Number: CERZ-1000556

PATIENT
  Age: 48 Year
  Sex: Male
  Weight: 86.2 kg

DRUGS (1)
  1. CEREZYME [Suspect]
     Indication: GAUCHER'S DISEASE
     Dosage: UNK, INTRAVENOUS
     Route: 042

REACTIONS (3)
  - INTERVERTEBRAL DISC PROTRUSION [None]
  - MUSCULAR WEAKNESS [None]
  - SPINAL COLUMN STENOSIS [None]
